FAERS Safety Report 13652588 (Version 1)
Quarter: 2017Q2

REPORT INFORMATION
  Report Type: Spontaneous
  Country: US (occurrence: US)
  Receive Date: 20170614
  Receipt Date: 20170614
  Transmission Date: 20170830
  Serious: No
  Sender: FDA-Public Use
  Company Number: US-ROCHE-762116

PATIENT
  Age: 57 Year
  Sex: Female

DRUGS (1)
  1. XELODA [Suspect]
     Active Substance: CAPECITABINE
     Indication: METASTASES TO LIVER
     Dosage: 2000 MG IN MORNING AND 1500 MG IN EVENING
     Route: 048

REACTIONS (7)
  - Asthma [Unknown]
  - Dyspnoea [Unknown]
  - Dry skin [Not Recovered/Not Resolved]
  - Dehydration [Unknown]
  - Tachycardia [Unknown]
  - Migraine [Unknown]
  - Anxiety [Unknown]

NARRATIVE: CASE EVENT DATE: 20110120
